FAERS Safety Report 6139370-5 (Version None)
Quarter: 2009Q2

REPORT INFORMATION
  Report Type: 
  Country: None (occurrence: None)
  Receive Date: 20090401
  Receipt Date: 20090327
  Transmission Date: 20091009
  Serious: Yes (Death, Life-Threatening, Hospitalization)
  Sender: FDA-Public Use
  Company Number: US-ROCHE-619780

PATIENT
  Sex: Female
  Weight: 108.9 kg

DRUGS (2)
  1. CAPECITABINE [Suspect]
     Indication: ANAL CANCER
     Dosage: 6 TABS DAILY
     Route: 048
     Dates: start: 20090211, end: 20090305
  2. CISPLATIN [Suspect]
     Indication: ANAL CANCER
     Dosage: STOP DATE REPORTED AS: ONLY ONE TREATMENT.
     Route: 042
     Dates: start: 20090211

REACTIONS (4)
  - COLITIS [None]
  - DIARRHOEA [None]
  - PNEUMONIA ASPIRATION [None]
  - VOMITING [None]
